FAERS Safety Report 5895024-1 (Version None)
Quarter: 2008Q3

REPORT INFORMATION
  Report Type: 
  Country: None (occurrence: None)
  Receive Date: 20080922
  Receipt Date: 20080908
  Transmission Date: 20090109
  Serious: Yes (Hospitalization)
  Sender: FDA-Public Use
  Company Number: DSA_32418_2008

PATIENT
  Sex: Male

DRUGS (4)
  1. LORAZEPAM [Suspect]
     Dosage: 40 MG 1X NOT THE PRESCRIBED AMOUNT ORAL)
     Route: 048
     Dates: start: 20080906, end: 20080906
  2. CHLORPROTHIXENE (CHLORPROTHIXENE) 15 MG [Suspect]
     Dosage: 270 MG 1X NOT THE PRESCRIBED AMOUNT ORAL
     Route: 048
     Dates: start: 20080906, end: 20080906
  3. SEROQUEL [Suspect]
     Dosage: 5000 MG 1X NOT THE PRESCRIBED AMOUNT, ORAL)
     Route: 048
     Dates: start: 20080906, end: 20080906
  4. VALPROIC ACID [Suspect]
     Dosage: 4500 MG 1X NOT THE PRESCRIBED AMOUNT, ORAL)
     Route: 048
     Dates: start: 20080906, end: 20080906

REACTIONS (6)
  - DISORIENTATION [None]
  - FALL [None]
  - MULTIPLE DRUG OVERDOSE INTENTIONAL [None]
  - RHABDOMYOLYSIS [None]
  - SUICIDE ATTEMPT [None]
  - TACHYCARDIA [None]
